FAERS Safety Report 10232420 (Version 2)
Quarter: 2014Q2

REPORT INFORMATION
  Report Type: Spontaneous
  Country: US (occurrence: None)
  Receive Date: 20140610
  Receipt Date: 20140618
  Transmission Date: 20141212
  Serious: No
  Sender: FDA-Public Use
  Company Number: NXG-14-007

PATIENT
  Sex: 0

DRUGS (1)
  1. FIORICET [Suspect]

REACTIONS (2)
  - Cough [None]
  - Bronchostenosis [None]
